FAERS Safety Report 11474154 (Version 1)
Quarter: 2015Q3

REPORT INFORMATION
  Report Type: Spontaneous
  Country: US (occurrence: None)
  Receive Date: 20150908
  Receipt Date: 20150908
  Transmission Date: 20151125
  Serious: Yes (Disabling)
  Sender: FDA-Public Use
  Company Number: None

PATIENT
  Age: 56 Year
  Sex: Male
  Weight: 68.95 kg

DRUGS (2)
  1. ATENOLOL 25 MG [Suspect]
     Active Substance: ATENOLOL
     Indication: HYPERTENSION
     Dosage: 1 PILL DAILY TAKEN BY MOUTH
     Route: 048
     Dates: end: 20150901
  2. CENTRUM MULTI-VITAMIN [Concomitant]

REACTIONS (2)
  - Tinnitus [None]
  - Deafness [None]

NARRATIVE: CASE EVENT DATE: 20150907
